FAERS Safety Report 9651373 (Version 1)
Quarter: 2013Q4

REPORT INFORMATION
  Report Type: Spontaneous
  Country: US (occurrence: US)
  Receive Date: 20131029
  Receipt Date: 20131029
  Transmission Date: 20140711
  Serious: No
  Sender: FDA-Public Use
  Company Number: US-BIOGENIDEC-2013BI072379

PATIENT
  Age: 67 Year
  Sex: Female

DRUGS (6)
  1. TECFIDERA [Suspect]
     Indication: MULTIPLE SCLEROSIS
     Route: 048
     Dates: start: 20130530
  2. TECFIDERA [Suspect]
     Indication: MULTIPLE SCLEROSIS
     Dates: start: 20130601, end: 20131007
  3. ZOFRAN [Concomitant]
  4. OMEGA 3 [Concomitant]
  5. SUPER B COMPLEX [Concomitant]
  6. PRAVASTATIN SODIUM [Concomitant]

REACTIONS (8)
  - Lethargy [Unknown]
  - Pyrexia [Recovered/Resolved]
  - Pain [Recovered/Resolved]
  - Nausea [Unknown]
  - Rash [Recovered/Resolved]
  - Vomiting [Recovered/Resolved]
  - Abdominal pain upper [Recovered/Resolved]
  - Oral pain [Recovered/Resolved]
